FAERS Safety Report 12687983 (Version 1)
Quarter: 2016Q3

REPORT INFORMATION
  Report Type: Report from Study
  Country: US (occurrence: US)
  Receive Date: 20160825
  Receipt Date: 20160825
  Transmission Date: 20161109
  Serious: Yes (Hospitalization)
  Sender: FDA-Public Use
  Company Number: US-ARIAD-2013US001446

PATIENT
  Age: 56 Year
  Sex: Male
  Weight: 67 kg

DRUGS (7)
  1. FLUCONAZOLE. [Concomitant]
     Active Substance: FLUCONAZOLE
     Indication: ANTIFUNGAL PROPHYLAXIS
     Dosage: 200 MG, BID
  2. ICLUSIG [Suspect]
     Active Substance: PONATINIB
     Indication: ACUTE LYMPHOCYTIC LEUKAEMIA
     Dosage: 45 MG, QD
     Route: 048
     Dates: start: 20130211, end: 20130408
  3. ICLUSIG [Suspect]
     Active Substance: PONATINIB
     Dosage: UNK
     Dates: start: 201304
  4. TOPROL XL [Concomitant]
     Active Substance: METOPROLOL SUCCINATE
     Indication: HYPERTENSION
     Dosage: 50 MG, QD
  5. RIMANTADINE [Concomitant]
     Active Substance: RIMANTADINE HYDROCHLORIDE
     Dosage: 150 MG, BID
  6. BACTRIM [Concomitant]
     Active Substance: SULFAMETHOXAZOLE\TRIMETHOPRIM
     Indication: ANTIBIOTIC THERAPY
     Dosage: UNK, M W F
  7. ZOVIRAX [Concomitant]
     Active Substance: ACYCLOVIR
     Indication: ANTIVIRAL TREATMENT
     Dosage: 400 MG, QD

REACTIONS (7)
  - Heart rate increased [Not Recovered/Not Resolved]
  - Urine flow decreased [Recovered/Resolved]
  - Blood pressure increased [Not Recovered/Not Resolved]
  - Graft versus host disease [Recovered/Resolved]
  - Vision blurred [Not Recovered/Not Resolved]
  - Liver function test increased [Recovered/Resolved]
  - Renal failure [Recovered/Resolved]

NARRATIVE: CASE EVENT DATE: 2013
